FAERS Safety Report 6483729-3 (Version None)
Quarter: 2009Q4

REPORT INFORMATION
  Report Type: 
  Country: None (occurrence: None)
  Receive Date: 20091209
  Receipt Date: 20091130
  Transmission Date: 20100525
  Serious: Yes (Disabling)
  Sender: FDA-Public Use
  Company Number: NZ-ASTRAZENECA-2009SE29251

PATIENT
  Age: 51 Year
  Sex: Male

DRUGS (5)
  1. OMEPRAZOLE [Suspect]
     Route: 048
     Dates: start: 20040601
  2. RIBAVIRIN [Suspect]
     Route: 048
     Dates: start: 20040601
  3. PEGINTERFERON [Suspect]
     Dosage: 150 RG, ONCE A WEEK
     Route: 058
     Dates: start: 20040601
  4. ZOPICLONE [Concomitant]
     Route: 048
  5. PARACETAMOL [Concomitant]
     Route: 048
     Dates: start: 20040601

REACTIONS (1)
  - ERECTILE DYSFUNCTION [None]
